FAERS Safety Report 18416297 (Version 2)
Quarter: 2020Q4

REPORT INFORMATION
  Report Type: Spontaneous
  Country: US (occurrence: US)
  Receive Date: 20201022
  Receipt Date: 20201028
  Transmission Date: 20210114
  Serious: Yes (Hospitalization, Other)
  Sender: FDA-Public Use
  Company Number: US-PFIZER INC-2020407802

PATIENT
  Age: 68 Year
  Sex: Female

DRUGS (5)
  1. LYRICA [Suspect]
     Active Substance: PREGABALIN
     Indication: NEUROPATHY PERIPHERAL
  2. FERROUS SULFATE. [Concomitant]
     Active Substance: FERROUS SULFATE
     Indication: HAEMOGLOBIN ABNORMAL
     Dosage: 325 MG, 1X/DAY
     Route: 048
  3. LEVOFLOXACIN. [Concomitant]
     Active Substance: LEVOFLOXACIN
     Indication: PNEUMONIA BACTERIAL
     Dosage: 500 MG, 1X/DAY
     Route: 048
  4. DEXAMETHASONE. [Concomitant]
     Active Substance: DEXAMETHASONE
     Dosage: 1 DF, DAILY; (7 PILLS, ONE EVERYDAY UNTIL IT IS GONE)
  5. LYRICA [Suspect]
     Active Substance: PREGABALIN
     Indication: PAIN
     Dosage: 150 MG, 2X/DAY
     Route: 048

REACTIONS (9)
  - COVID-19 [Unknown]
  - Haemoglobin decreased [Recovered/Resolved]
  - Pneumonia [Unknown]
  - Blood test abnormal [Unknown]
  - Peripheral swelling [Unknown]
  - Blood glucose abnormal [Unknown]
  - Illness [Unknown]
  - Bronchitis [Unknown]
  - Fear [Unknown]

NARRATIVE: CASE EVENT DATE: 202010
